FAERS Safety Report 11008148 (Version 2)
Quarter: 2015Q2

REPORT INFORMATION
  Report Type: Spontaneous
  Country: GB (occurrence: GB)
  Receive Date: 20150410
  Receipt Date: 20150414
  Transmission Date: 20150821
  Serious: Yes (Hospitalization, Other)
  Sender: FDA-Public Use
  Company Number: GB-ROCHE-1562188

PATIENT
  Age: 65 Year
  Sex: Female
  Weight: 76.2 kg

DRUGS (4)
  1. CYCLOPHOSPHAMIDE. [Concomitant]
     Active Substance: CYCLOPHOSPHAMIDE
  2. EXEMESTANE. [Concomitant]
     Active Substance: EXEMESTANE
  3. LEFLUNOMIDE. [Concomitant]
     Active Substance: LEFLUNOMIDE
     Route: 048
  4. TOCILIZUMAB [Suspect]
     Active Substance: TOCILIZUMAB
     Indication: RHEUMATOID ARTHRITIS
     Dosage: MOST RECENT DOSE PRIOR TO SAE 02/DEC/2013, 30/DEC/2013,  24/JAN/2014.
     Route: 042
     Dates: start: 20130225, end: 20140224

REACTIONS (2)
  - Breast cancer [Recovered/Resolved with Sequelae]
  - Rheumatoid arthritis [Unknown]

NARRATIVE: CASE EVENT DATE: 201402
